FAERS Safety Report 19057048 (Version 3)
Quarter: 2021Q2

REPORT INFORMATION
  Report Type: Report from Study
  Country: US (occurrence: US)
  Receive Date: 20210325
  Receipt Date: 20210510
  Transmission Date: 20210717
  Serious: Yes (Hospitalization)
  Sender: FDA-Public Use
  Company Number: US-EISAI MEDICAL RESEARCH-EC-2021-090086

PATIENT
  Age: 68 Year
  Sex: Female
  Weight: 100 kg

DRUGS (24)
  1. LENVIMA [Suspect]
     Active Substance: LENVATINIB
     Route: 048
     Dates: start: 20200904, end: 2020
  2. LENVIMA [Suspect]
     Active Substance: LENVATINIB
     Route: 048
     Dates: end: 2021
  3. JANUVIA [Concomitant]
     Active Substance: SITAGLIPTIN PHOSPHATE
  4. METFORMIN [Concomitant]
     Active Substance: METFORMIN HYDROCHLORIDE
  5. LEVOTHYROXINE SODIUM. [Concomitant]
     Active Substance: LEVOTHYROXINE SODIUM
  6. NIFEDIPINE. [Concomitant]
     Active Substance: NIFEDIPINE
  7. LENVIMA [Suspect]
     Active Substance: LENVATINIB
     Indication: HEPATOCELLULAR CARCINOMA
     Route: 048
     Dates: start: 20191115, end: 2020
  8. LISINOPRIL. [Concomitant]
     Active Substance: LISINOPRIL
  9. HYDRALAZINE [Concomitant]
     Active Substance: HYDRALAZINE HYDROCHLORIDE
  10. VITAMIN B12 [Concomitant]
     Active Substance: CYANOCOBALAMIN
  11. GLIPIZIDE. [Concomitant]
     Active Substance: GLIPIZIDE
     Route: 065
  12. VITAMIN D3 [Concomitant]
     Active Substance: CHOLECALCIFEROL
  13. HYDROCHLOROTHIAZIDE. [Concomitant]
     Active Substance: HYDROCHLOROTHIAZIDE
  14. MULTIVITAMIN [Concomitant]
     Active Substance: VITAMINS
  15. LENVIMA [Suspect]
     Active Substance: LENVATINIB
     Route: 048
     Dates: end: 2021
  16. LENVIMA [Suspect]
     Active Substance: LENVATINIB
     Route: 048
     Dates: start: 2021, end: 2021
  17. PROCHLORPERAZINE. [Concomitant]
     Active Substance: PROCHLORPERAZINE
  18. ATORVASTATIN [Concomitant]
     Active Substance: ATORVASTATIN
  19. CALCIUM [Concomitant]
     Active Substance: CALCIUM
  20. AMLODIPINE BESYLATE. [Concomitant]
     Active Substance: AMLODIPINE BESYLATE
  21. LEVEMIR [Concomitant]
     Active Substance: INSULIN DETEMIR
  22. LYRICA [Concomitant]
     Active Substance: PREGABALIN
  23. LENVIMA [Suspect]
     Active Substance: LENVATINIB
     Route: 048
     Dates: start: 202007, end: 20200903
  24. DICLOFENAC SODIUM. [Concomitant]
     Active Substance: DICLOFENAC SODIUM

REACTIONS (4)
  - Cardiac failure [Unknown]
  - Hypertension [Unknown]
  - Constipation [Unknown]
  - Chest pain [Unknown]

NARRATIVE: CASE EVENT DATE: 2021
